FAERS Safety Report 13035628 (Version 1)
Quarter: 2016Q4

REPORT INFORMATION
  Report Type: Spontaneous
  Country: SG (occurrence: SG)
  Receive Date: 20161216
  Receipt Date: 20161216
  Transmission Date: 20170207
  Serious: Yes (Other)
  Sender: FDA-Public Use
  Company Number: SG-BAYER-2016-234463

PATIENT
  Age: 37 Year
  Sex: Female
  Weight: 50.5 kg

DRUGS (3)
  1. ACETYLSALICYLIC ACID({=100 MG) [Suspect]
     Active Substance: ASPIRIN
     Dosage: 100 MG, UNK
  2. PREDNISOLONE. [Concomitant]
     Active Substance: PREDNISOLONE
     Dosage: 20 MG, UNK
  3. HEPARIN [Concomitant]
     Active Substance: HEPARIN SODIUM
     Dosage: 20 MG, QD
     Route: 058

REACTIONS (6)
  - Oligohydramnios [None]
  - Placental insufficiency [None]
  - Pre-eclampsia [None]
  - Maternal exposure during pregnancy [None]
  - Foetal growth restriction [None]
  - Thrombocytopenia [None]
